FAERS Safety Report 13037505 (Version 1)
Quarter: 2016Q4

REPORT INFORMATION
  Report Type: Spontaneous
  Country: None (occurrence: DE)
  Receive Date: 20161217
  Receipt Date: 20161217
  Transmission Date: 20170207
  Serious: Yes (Congenital Anomaly)
  Sender: FDA-Public Use
  Company Number: DE-HETERO LABS LTD-1060935

PATIENT
  Age: 1 Day
  Sex: Female

DRUGS (7)
  1. THYRONAJOD [Concomitant]
     Active Substance: LEVOTHYROXINE SODIUM\POTASSIUM IODIDE
  2. FOLIO FORTE [Concomitant]
     Active Substance: FOLIC ACID\VITAMINS
     Route: 064
     Dates: start: 20151002, end: 20160701
  3. KORODIN [Concomitant]
     Active Substance: CAMPHOR (SYNTHETIC)\MENTHOL
     Route: 064
  4. OPIPRAMOL [Concomitant]
     Active Substance: OPIPRAMOL
     Route: 064
  5. ESCITALOPRAM [Suspect]
     Active Substance: ESCITALOPRAM OXALATE
     Indication: DEPRESSION
     Dates: start: 20151004
  6. PARACETAMOL [Concomitant]
     Active Substance: ACETAMINOPHEN
  7. IBUPROFEN LYSINATE [Concomitant]
     Active Substance: IBUPROFEN LYSINE
     Route: 064

REACTIONS (2)
  - Ventricular septal defect [Recovering/Resolving]
  - Foetal exposure during pregnancy [Unknown]

NARRATIVE: CASE EVENT DATE: 20160701
